FAERS Safety Report 7512992-2 (Version None)
Quarter: 2011Q2

REPORT INFORMATION
  Report Type: 
  Country: None (occurrence: None)
  Receive Date: 20110531
  Receipt Date: 20110527
  Transmission Date: 20111010
  Serious: Yes (Other)
  Sender: FDA-Public Use
  Company Number: DE-PFIZER INC-2011116125

PATIENT
  Age: 50 Year
  Sex: Female

DRUGS (1)
  1. CYKLOKAPRON [Suspect]
     Indication: PULMONARY HAEMORRHAGE
     Dosage: UNK
     Route: 042
     Dates: start: 20110501, end: 20110501

REACTIONS (1)
  - PLATELET COUNT ABNORMAL [None]
